FAERS Safety Report 4525920-9 (Version None)
Quarter: 2004Q4

REPORT INFORMATION
  Report Type: 
  Country: None (occurrence: None)
  Receive Date: 20041213
  Receipt Date: 20041029
  Transmission Date: 20050328
  Serious: Yes (Hospitalization, Other)
  Sender: FDA-Public Use
  Company Number: US-MERCK-0411USA00086

PATIENT
  Age: 82 Year
  Sex: Male

DRUGS (9)
  1. DIOVAN [Concomitant]
     Route: 065
  2. COUMADIN [Concomitant]
     Route: 065
  3. VIOXX [Suspect]
     Indication: BACK PAIN
     Route: 048
     Dates: start: 20030101, end: 20040101
  4. FUROSEMIDE [Concomitant]
     Route: 065
  5. CARDIZEM [Concomitant]
     Route: 065
  6. DIGITEK [Concomitant]
     Route: 065
  7. PRAVACHOL [Concomitant]
     Route: 065
  8. FOSAMAX [Concomitant]
     Route: 065
  9. CASODEX [Concomitant]
     Route: 065

REACTIONS (3)
  - CEREBROVASCULAR ACCIDENT [None]
  - CONVULSION [None]
  - HYPOAESTHESIA [None]
